FAERS Safety Report 24252287 (Version 1)
Quarter: 2024Q3

REPORT INFORMATION
  Report Type: Spontaneous
  Country: US (occurrence: US)
  Receive Date: 20240827
  Receipt Date: 20240827
  Transmission Date: 20241016
  Serious: Yes (Other)
  Sender: SANDOZ
  Company Number: US-SANDOZ-SDZ2024US075058

PATIENT
  Age: 39 Year
  Sex: Male

DRUGS (7)
  1. DOCETAXEL [Suspect]
     Active Substance: DOCETAXEL\DOCETAXEL ANHYDROUS
     Indication: Angiosarcoma
     Dosage: 1L
     Route: 065
  2. CABOZANTINIB [Concomitant]
     Active Substance: CABOZANTINIB
     Indication: Product used for unknown indication
     Dosage: UNK
     Route: 065
     Dates: start: 20240703
  3. GEMCITABINE [Concomitant]
     Active Substance: GEMCITABINE
     Indication: Product used for unknown indication
     Route: 065
  4. GEMCITABINE [Concomitant]
     Active Substance: GEMCITABINE
     Indication: Product used for unknown indication
     Route: 065
  5. NIVOLUMAB [Concomitant]
     Active Substance: NIVOLUMAB
     Indication: Product used for unknown indication
     Dosage: 1 UNK
     Route: 065
     Dates: start: 20240708
  6. RETIFANLIMAB [Concomitant]
     Active Substance: RETIFANLIMAB
     Indication: Product used for unknown indication
     Route: 065
  7. RETIFANLIMAB [Concomitant]
     Active Substance: RETIFANLIMAB
     Indication: Product used for unknown indication
     Route: 065

REACTIONS (1)
  - Neuropathy peripheral [Recovered/Resolved]
